FAERS Safety Report 12693779 (Version 1)
Quarter: 2016Q3

REPORT INFORMATION
  Report Type: Spontaneous
  Country: US (occurrence: US)
  Receive Date: 20160829
  Receipt Date: 20160829
  Transmission Date: 20161109
  Serious: No
  Sender: FDA-Public Use
  Company Number: US-PFIZER INC-2016123912

PATIENT
  Age: 54 Year
  Sex: Male
  Weight: 70.3 kg

DRUGS (10)
  1. LYRICA [Suspect]
     Active Substance: PREGABALIN
     Indication: DIABETIC NEUROPATHY
     Dosage: 150 MG, 2X/DAY
     Route: 048
     Dates: start: 2014
  2. LYRICA [Suspect]
     Active Substance: PREGABALIN
     Dosage: 100 MG, 3X/DAY
     Route: 048
  3. HUMULIN N [Concomitant]
     Active Substance: INSULIN HUMAN
     Dosage: 2X/DAY (100 IU/ML :20 UNITS IN THE MORNING, 15 UNITS AT NIGHT)
  4. METFORMIN [Concomitant]
     Active Substance: METFORMIN HYDROCHLORIDE
     Dosage: 600 MG, 2X/DAY
  5. TRULICITY [Concomitant]
     Active Substance: DULAGLUTIDE
     Dosage: UNK
  6. BUPROPION. [Concomitant]
     Active Substance: BUPROPION
     Dosage: 200 MG, DAILY
  7. LISINOPRIL. [Concomitant]
     Active Substance: LISINOPRIL
     Dosage: 30 MG, DAILY
  8. VITAMIN D [Concomitant]
     Active Substance: CHOLECALCIFEROL
     Dosage: 1 DF (50,000 RS D2 (ER60)), 3X/DAY
  9. ASPIRIN (E.C.) [Concomitant]
     Active Substance: ASPIRIN
     Dosage: 325 MG, 1X/DAY
  10. ATORVASTATIN [Concomitant]
     Active Substance: ATORVASTATIN
     Dosage: 40 MG, 1X/DAY

REACTIONS (5)
  - Fatigue [Recovering/Resolving]
  - Somnolence [Recovering/Resolving]
  - Visual acuity reduced [Unknown]
  - Product use issue [Unknown]
  - Feeling abnormal [Unknown]

NARRATIVE: CASE EVENT DATE: 2014
